FAERS Safety Report 25947586 (Version 2)
Quarter: 2025Q4

REPORT INFORMATION
  Report Type: Report from Study
  Country: GB (occurrence: GB)
  Receive Date: 20251022
  Receipt Date: 20251106
  Transmission Date: 20260118
  Serious: Yes (Other)
  Sender: AMGEN
  Company Number: GB-AMGEN-GBRSL2024216316

PATIENT
  Age: 58 Year
  Sex: Male

DRUGS (1)
  1. ECULIZUMAB [Suspect]
     Active Substance: ECULIZUMAB
     Indication: Paroxysmal nocturnal haemoglobinuria
     Dosage: 1500 MILLIGRAM, Q2WK
     Route: 065
     Dates: start: 20240724

REACTIONS (24)
  - Sepsis [Unknown]
  - Hypothermia [Unknown]
  - Diabetes mellitus [Unknown]
  - Fatigue [Not Recovered/Not Resolved]
  - Dizziness [Unknown]
  - Diarrhoea [Unknown]
  - Asthenia [Unknown]
  - Visual impairment [Unknown]
  - Vertigo [Unknown]
  - Hypotension [Unknown]
  - Dyspnoea exertional [Unknown]
  - Fall [Unknown]
  - Contusion [Unknown]
  - Balance disorder [Unknown]
  - Gait disturbance [Unknown]
  - Agitation [Unknown]
  - Confusional state [Unknown]
  - Cognitive disorder [Unknown]
  - Arthritis [Unknown]
  - Incontinence [Unknown]
  - Pollakiuria [Unknown]
  - Cardiovascular disorder [Unknown]
  - Nervous system disorder [Unknown]
  - Off label use [Unknown]

NARRATIVE: CASE EVENT DATE: 20241113
